FAERS Safety Report 5015634-3 (Version None)
Quarter: 2006Q2

REPORT INFORMATION
  Report Type: 
  Country: None (occurrence: None)
  Receive Date: 20060601
  Receipt Date: 20041118
  Transmission Date: 20061013
  Serious: Yes (Death, Life-Threatening, Hospitalization, Disabling)
  Sender: FDA-Public Use
  Company Number: TH-SANOFI-SYNTHELABO-F01200403671

PATIENT
  Sex: Male
  Weight: 46 kg

DRUGS (12)
  1. BACLOFEN [Concomitant]
     Dosage: UNK
     Route: 065
     Dates: start: 20041110, end: 20041112
  2. OXALIPLATIN [Suspect]
     Indication: COLORECTAL CANCER METASTATIC
     Route: 042
  3. OXALIPLATIN [Suspect]
     Route: 042
     Dates: start: 20041123, end: 20041123
  4. LEUCOVORIN [Suspect]
     Route: 042
  5. LEUCOVORIN [Suspect]
     Route: 042
     Dates: start: 20041123, end: 20041123
  6. DOMPERIDONE [Concomitant]
     Dosage: UNK
     Route: 065
     Dates: start: 20041102, end: 20041112
  7. FLUOROURACIL [Suspect]
     Route: 042
  8. FLUOROURACIL [Suspect]
     Dosage: 410 MG IV BOLUS AND 685 MG IV CONTINUOUS INFUSION
     Route: 042
     Dates: start: 20041123, end: 20041124
  9. ONDANSETRON HCL [Concomitant]
     Dosage: UNK
     Route: 065
     Dates: start: 20041102, end: 20041102
  10. DEXAMETHASONE TAB [Concomitant]
     Dosage: UNK
     Route: 065
     Dates: start: 20041102, end: 20041102
  11. BEVACIZUMAB OR PLACEBO [Suspect]
     Route: 042
  12. BEVACIZUMAB OR PLACEBO [Suspect]
     Route: 042
     Dates: start: 20041123, end: 20041123

REACTIONS (11)
  - ACTIVATED PARTIAL THROMBOPLASTIN TIME PROLONGED [None]
  - DISSEMINATED INTRAVASCULAR COAGULATION [None]
  - FEBRILE NEUTROPENIA [None]
  - HYPOTENSION [None]
  - MULTI-ORGAN FAILURE [None]
  - NAUSEA [None]
  - PLATELET COUNT DECREASED [None]
  - PROTHROMBIN TIME PROLONGED [None]
  - RESPIRATORY FAILURE [None]
  - SEPTIC SHOCK [None]
  - VOMITING [None]
